FAERS Safety Report 6072972-3 (Version None)
Quarter: 2009Q1

REPORT INFORMATION
  Report Type: 
  Country: None (occurrence: None)
  Receive Date: 20090209
  Receipt Date: 20090129
  Transmission Date: 20090719
  Serious: Yes (Death)
  Sender: FDA-Public Use
  Company Number: TPA2009A00152

PATIENT
  Age: 50 Year
  Sex: Male

DRUGS (8)
  1. ACTOS [Suspect]
     Dosage: PER ORAL
     Route: 048
  2. COLCHICINE (COLCHICINE) [Suspect]
     Dosage: PER ORAL
     Route: 048
  3. AMLODIPINE [Suspect]
     Dosage: PER ORAL
     Route: 048
  4. METOPROLOL TARTRATE [Suspect]
     Dosage: PER ORAL
     Route: 048
  5. LISINOPRIL [Suspect]
     Dosage: PER ORAL
     Route: 048
  6. GLIPIZIDE [Suspect]
     Dosage: PER ORAL
     Route: 048
  7. CLOPIDOGREL [Suspect]
     Dosage: PER ORAL
     Route: 048
  8. SIMVASTATIN [Suspect]
     Dosage: PER ORAL
     Route: 048

REACTIONS (1)
  - COMPLETED SUICIDE [None]
